FAERS Safety Report 5559110-8 (Version None)
Quarter: 2007Q4

REPORT INFORMATION
  Report Type: 
  Country: None (occurrence: None)
  Receive Date: 20071214
  Receipt Date: 20070914
  Transmission Date: 20080405
  Serious: No
  Sender: FDA-Public Use
  Company Number: US-ABBOTT-07P-163-0417473-00

PATIENT
  Sex: Female
  Weight: 59.02 kg

DRUGS (4)
  1. HUMIRA [Suspect]
     Indication: RHEUMATOID ARTHRITIS
     Route: 058
     Dates: start: 20041201
  2. METOPROLOL SUCCINATE [Concomitant]
     Indication: SUPRAVENTRICULAR TACHYCARDIA
     Route: 048
  3. METOPROLOL SUCCINATE [Concomitant]
     Indication: SINUS TACHYCARDIA
  4. LORAZEPAM [Concomitant]
     Indication: ANXIETY
     Route: 048

REACTIONS (1)
  - HEART RATE INCREASED [None]
